FAERS Safety Report 15215746 (Version 1)
Quarter: 2018Q3

REPORT INFORMATION
  Report Type: Spontaneous
  Country: US (occurrence: US)
  Receive Date: 20180703
  Receipt Date: 20180703
  Transmission Date: 20181010
  Serious: Yes (Hospitalization)
  Sender: FDA-Public Use
  Company Number: None

PATIENT
  Age: 13 Year
  Sex: Male
  Weight: 94.8 kg

DRUGS (7)
  1. RAPAMUNE [Suspect]
     Active Substance: SIROLIMUS
     Indication: COGNITIVE DISORDER
     Route: 048
     Dates: start: 20171208
  2. ZOFRAN [Concomitant]
     Active Substance: ONDANSETRON HYDROCHLORIDE
     Dates: start: 20111105
  3. ASPIRIN. [Concomitant]
     Active Substance: ASPIRIN
     Dates: start: 20110308
  4. KEPPRA [Concomitant]
     Active Substance: LEVETIRACETAM
     Dates: start: 20180607
  5. CARNITOR [Concomitant]
     Active Substance: LEVOCARNITINE
     Dates: start: 20170307
  6. PROAMATINE [Concomitant]
     Active Substance: MIDODRINE HYDROCHLORIDE
     Dates: start: 20161208
  7. DEPAKENE [Concomitant]
     Active Substance: VALPROIC ACID
     Dates: start: 20170614

REACTIONS (8)
  - Cerebrovascular accident [None]
  - Seizure [None]
  - Vomiting [None]
  - Aphasia [None]
  - Urinary incontinence [None]
  - Hypotension [None]
  - Tremor [None]
  - Facial paralysis [None]

NARRATIVE: CASE EVENT DATE: 20180623
